FAERS Safety Report 9319565 (Version 2)
Quarter: 2014Q1

REPORT INFORMATION
  Report Type: Spontaneous
  Country: US (occurrence: US)
  Receive Date: 20130530
  Receipt Date: 20140225
  Transmission Date: 20141002
  Serious: Yes (Hospitalization)
  Sender: FDA-Public Use
  Company Number: US-GLAXOSMITHKLINE-A1007192A

PATIENT
  Age: 53 Year
  Sex: Female

DRUGS (3)
  1. FLOLAN [Suspect]
     Indication: PULMONARY ARTERIAL HYPERTENSION
     Dosage: 50NGKM CONTINUOUS
     Route: 042
     Dates: start: 20060817
  2. REVATIO [Concomitant]
  3. LETAIRIS [Concomitant]

REACTIONS (15)
  - Device related infection [Not Recovered/Not Resolved]
  - Malaise [Unknown]
  - Flushing [Unknown]
  - Headache [Unknown]
  - Fatigue [Unknown]
  - Feeling hot [Unknown]
  - Poor quality sleep [Unknown]
  - Therapy cessation [Unknown]
  - Device infusion issue [Unknown]
  - Application site erythema [Not Recovered/Not Resolved]
  - Weight decreased [Not Recovered/Not Resolved]
  - Ill-defined disorder [Not Recovered/Not Resolved]
  - Cardiac output increased [Unknown]
  - Catheter site bruise [Unknown]
  - Catheter site hypersensitivity [Unknown]
